FAERS Safety Report 5866224-1 (Version None)
Quarter: 2008Q3

REPORT INFORMATION
  Report Type: 
  Country: None (occurrence: None)
  Receive Date: 20080829
  Receipt Date: 20080820
  Transmission Date: 20090109
  Serious: Yes (Other)
  Sender: FDA-Public Use
  Company Number: GB-PFIZER INC-2008069944

PATIENT
  Age: 65 Year
  Sex: Female
  Weight: 73 kg

DRUGS (1)
  1. EXEMESTANE [Suspect]
     Dosage: TEXT:25MG
     Route: 048
     Dates: start: 20080402, end: 20080430

REACTIONS (2)
  - DYSPNOEA [None]
  - HEART RATE DECREASED [None]
